FAERS Safety Report 13227962 (Version 2)
Quarter: 2017Q2

REPORT INFORMATION
  Report Type: Report from Study
  Country: BR (occurrence: BR)
  Receive Date: 20170213
  Receipt Date: 20170525
  Transmission Date: 20170830
  Serious: Yes (Other)
  Sender: FDA-Public Use
  Company Number: PHHY2017BR020071

PATIENT
  Age: 46 Year
  Sex: Female
  Weight: 57.8 kg

DRUGS (3)
  1. OMNITROPE [Suspect]
     Active Substance: SOMATROPIN
     Indication: SKIN DISORDER
  2. OMNITROPE [Suspect]
     Active Substance: SOMATROPIN
     Indication: MENOPAUSE
  3. OMNITROPE [Suspect]
     Active Substance: SOMATROPIN
     Indication: SLEEP DISORDER
     Dosage: 03 MG, QD
     Route: 058
     Dates: start: 201608

REACTIONS (4)
  - Off label use [Unknown]
  - Intra-abdominal haemorrhage [Unknown]
  - Device defective [Unknown]
  - Drug administration error [Unknown]
